FAERS Safety Report 17959641 (Version 1)
Quarter: 2020Q2

REPORT INFORMATION
  Report Type: Report from Study
  Country: GR (occurrence: GR)
  Receive Date: 20200629
  Receipt Date: 20200629
  Transmission Date: 20200714
  Serious: Yes (Death)
  Sender: FDA-Public Use
  Company Number: GR-ACTELION-A-NJ2020-206634

PATIENT
  Sex: Male

DRUGS (1)
  1. VENTAVIS [Suspect]
     Active Substance: ILOPROST
     Indication: PULMONARY ARTERIAL HYPERTENSION
     Dosage: 5 MCG, QD
     Route: 055
     Dates: start: 20190124, end: 20200613

REACTIONS (1)
  - Death [Fatal]

NARRATIVE: CASE EVENT DATE: 20200613
